FAERS Safety Report 5423103-1 (Version None)
Quarter: 2007Q3

REPORT INFORMATION
  Report Type: 
  Country: None (occurrence: None)
  Receive Date: 20070821
  Receipt Date: 20070806
  Transmission Date: 20080115
  Serious: Yes (Other)
  Sender: FDA-Public Use
  Company Number: 2007RR-09222

PATIENT
  Age: 46 Year
  Sex: Male
  Weight: 80 kg

DRUGS (4)
  1. CIPROFLOXACIN [Suspect]
     Indication: EPIDIDYMAL DISORDER
     Dosage: 500 MG, BID, ORAL
     Route: 048
     Dates: start: 20070703, end: 20070724
  2. PROPRANOLOL [Concomitant]
  3. RAMIPRIL [Concomitant]
  4. SIMVASTATIN [Concomitant]

REACTIONS (1)
  - PODAGRA [None]
